FAERS Safety Report 10042919 (Version 2)
Quarter: 2014Q2

REPORT INFORMATION
  Report Type: Spontaneous
  Country: US (occurrence: US)
  Receive Date: 20140328
  Receipt Date: 20140407
  Transmission Date: 20141212
  Serious: No
  Sender: FDA-Public Use
  Company Number: US-009507513-1403USA009487

PATIENT
  Sex: 0

DRUGS (1)
  1. ASMANEX TWISTHALER [Suspect]
     Dosage: ONE PUFF ONCE A DAY
     Route: 055
     Dates: start: 201310

REACTIONS (2)
  - Drug dose omission [Unknown]
  - Product quality issue [Unknown]
